FAERS Safety Report 12761344 (Version 1)
Quarter: 2016Q3

REPORT INFORMATION
  Report Type: Other
  Country: AU (occurrence: AU)
  Receive Date: 20160920
  Receipt Date: 20160920
  Transmission Date: 20161109
  Serious: No
  Sender: FDA-Public Use
  Company Number: AU-LUPIN PHARMACEUTICALS INC.-2016-03447

PATIENT
  Age: 47 Year
  Sex: Female

DRUGS (7)
  1. HOMATROPINE [Suspect]
     Active Substance: HOMATROPINE\HOMATROPINE HYDROBROMIDE
     Indication: INFECTIVE KERATITIS
     Route: 031
  2. IRBESARTAN. [Concomitant]
     Active Substance: IRBESARTAN
     Indication: HYPERTENSION
     Route: 065
  3. CIPROFLOXACIN. [Suspect]
     Active Substance: CIPROFLOXACIN
     Indication: INFECTIVE KERATITIS
     Route: 031
  4. CIPROFLOXACIN. [Suspect]
     Active Substance: CIPROFLOXACIN
     Indication: NOCARDIOSIS
  5. TOBRAMYCIN. [Suspect]
     Active Substance: TOBRAMYCIN
     Indication: INFECTIVE KERATITIS
     Route: 031
  6. TOBRAMYCIN. [Suspect]
     Active Substance: TOBRAMYCIN
     Indication: NOCARDIOSIS
  7. HOMATROPINE [Suspect]
     Active Substance: HOMATROPINE\HOMATROPINE HYDROBROMIDE
     Indication: NOCARDIOSIS

REACTIONS (1)
  - Eye irritation [Recovered/Resolved]
